FAERS Safety Report 6054024-1 (Version None)
Quarter: 2009Q1

REPORT INFORMATION
  Report Type: 
  Country: None (occurrence: None)
  Receive Date: 20090123
  Receipt Date: 20090123
  Transmission Date: 20090719
  Serious: Yes (Other)
  Sender: FDA-Public Use
  Company Number: None

PATIENT
  Age: 30 Year
  Sex: Female
  Weight: 56.6996 kg

DRUGS (1)
  1. MONISTAT 1 COMBINATION PACK [Suspect]
     Indication: FUNGAL INFECTION
     Dosage: 1 OVULE INSERT 1 TIME VAG
     Route: 067
     Dates: start: 20090121, end: 20090121

REACTIONS (3)
  - CAUSTIC INJURY [None]
  - THINKING ABNORMAL [None]
  - VULVOVAGINAL BURNING SENSATION [None]
